FAERS Safety Report 9080494 (Version 1)
Quarter: 2013Q1

REPORT INFORMATION
  Report Type: Report from Study
  Country: US (occurrence: US)
  Receive Date: 20130130
  Receipt Date: 20130130
  Transmission Date: 20140127
  Serious: No
  Sender: FDA-Public Use
  Company Number: US-ABBOTT-12P-163-0963607-00

PATIENT
  Age: 50 Year
  Sex: Female
  Weight: 97.16 kg

DRUGS (16)
  1. HUMIRA 40 MG/0.8 ML PEN [Suspect]
     Indication: RHEUMATOID ARTHRITIS
     Route: 058
  2. METHOTREXATE [Concomitant]
     Indication: RHEUMATOID ARTHRITIS
     Route: 048
  3. LEFLUNOMIDE [Concomitant]
     Indication: RHEUMATOID ARTHRITIS
  4. MOBIC [Concomitant]
     Indication: ARTHRALGIA
  5. PERCOCET [Concomitant]
     Indication: PAIN
  6. NORVASC [Concomitant]
     Indication: BLOOD PRESSURE
  7. SIMVASTATIN [Concomitant]
     Indication: BLOOD CHOLESTEROL
  8. ADVAIR [Concomitant]
     Indication: ASTHMA
  9. ALBUTEROL [Concomitant]
     Indication: ASTHMA
  10. SINGULAIR [Concomitant]
     Indication: ASTHMA
  11. ALBUTEROL NEBULIZER SOLUTION [Concomitant]
     Indication: ASTHMA
  12. OXYBUTYNIN [Concomitant]
     Indication: URINARY INCONTINENCE
  13. PAXIL [Concomitant]
     Indication: DEPRESSION
  14. XANAX [Concomitant]
     Indication: ANXIETY
  15. FOLIC ACID [Concomitant]
     Indication: RHEUMATOID ARTHRITIS
  16. ZANTAC [Concomitant]
     Indication: PROPHYLAXIS AGAINST GASTROINTESTINAL ULCER

REACTIONS (3)
  - Injection site pain [Recovering/Resolving]
  - Injection site pain [Recovering/Resolving]
  - Injection site bruising [Recovering/Resolving]
